FAERS Safety Report 8026110-8 (Version None)
Quarter: 2012Q1

REPORT INFORMATION
  Report Type: 
  Country: None (occurrence: None)
  Receive Date: 20120105
  Receipt Date: 20120105
  Transmission Date: 20120608
  Serious: Yes (Hospitalization)
  Sender: FDA-Public Use
  Company Number: JP-B.I. PHARMACEUTICALS,INC./RIDGEFIELD-2011-BP-28480NB

PATIENT
  Sex: Male
  Weight: 44 kg

DRUGS (5)
  1. MUCOSOLVAN [Concomitant]
     Indication: EMPHYSEMA
     Dosage: 45 MG
     Route: 048
  2. SPIRIVA [Suspect]
     Indication: EMPHYSEMA
     Dosage: 5 MCG
     Route: 055
     Dates: start: 20101120, end: 20101228
  3. BISOLVON [Concomitant]
     Indication: EMPHYSEMA
     Dosage: 12 MG
     Route: 048
  4. LEVOTHYROXINE SODIUM [Concomitant]
     Dosage: 50 MCG
     Route: 048
  5. GARENOXACIN MESYLATE [Concomitant]
     Dosage: 200 MG
     Route: 048
     Dates: end: 20101205

REACTIONS (2)
  - CHRONIC OBSTRUCTIVE PULMONARY DISEASE [None]
  - PNEUMONIA [None]
